FAERS Safety Report 19807938 (Version 2)
Quarter: 2021Q4

REPORT INFORMATION
  Report Type: Report from Study
  Country: PL (occurrence: PL)
  Receive Date: 20210908
  Receipt Date: 20211005
  Transmission Date: 20220303
  Serious: Yes (Hospitalization)
  Sender: FDA-Public Use
  Company Number: PL-ROCHE-2903898

PATIENT
  Age: 40 Year
  Sex: Male
  Weight: 73 kg

DRUGS (2)
  1. ALECTINIB [Suspect]
     Active Substance: ALECTINIB
     Indication: Non-small cell lung cancer
     Dosage: DOSE CONCENTRATION 150?DOSE LAST STUDY DRUG ADMIN PRIOR AE: 600 MG?DOSE OF STUDY DRUG FIRST ADMINIST
     Route: 048
     Dates: start: 20180730
  2. GRIPEX (POLAND) [Concomitant]
     Indication: Nasopharyngitis
     Route: 048
     Dates: start: 20200211

REACTIONS (1)
  - Cerebrovascular accident [Recovered/Resolved]

NARRATIVE: CASE EVENT DATE: 20210727
